FAERS Safety Report 17651837 (Version 1)
Quarter: 2020Q2

REPORT INFORMATION
  Report Type: Spontaneous
  Country: DE (occurrence: DE)
  Receive Date: 20200409
  Receipt Date: 20200409
  Transmission Date: 20200713
  Serious: Yes (Death, Other)
  Sender: FDA-Public Use
  Company Number: DE-TEVA-2020-DE-1165203

PATIENT
  Age: 67 Year
  Sex: Female

DRUGS (4)
  1. VARGATEF [Suspect]
     Active Substance: NINTEDANIB
     Indication: NON-SMALL CELL LUNG CANCER
     Route: 048
     Dates: start: 20180327, end: 20180420
  2. DOCETAXEL. [Suspect]
     Active Substance: DOCETAXEL
     Route: 065
     Dates: start: 20180621, end: 20180712
  3. DOCETAXEL. [Suspect]
     Active Substance: DOCETAXEL
     Route: 065
     Dates: start: 20180511
  4. DOCETAXEL. [Suspect]
     Active Substance: DOCETAXEL
     Indication: PRODUCT USED FOR UNKNOWN INDICATION
     Route: 065
     Dates: start: 20180327, end: 20180420

REACTIONS (4)
  - Diarrhoea [Unknown]
  - Non-small cell lung cancer [Unknown]
  - Mucosal inflammation [Unknown]
  - Death [Fatal]

NARRATIVE: CASE EVENT DATE: 20181012
